FAERS Safety Report 16000167 (Version 1)
Quarter: 2019Q1

REPORT INFORMATION
  Report Type: Spontaneous
  Country: CA (occurrence: CA)
  Receive Date: 20190225
  Receipt Date: 20190225
  Transmission Date: 20190418
  Serious: Yes (Hospitalization, Other)
  Sender: FDA-Public Use
  Company Number: CA-ASTRAZENECA-2019SE31428

PATIENT
  Age: 56 Year
  Sex: Female

DRUGS (23)
  1. REACTINE [CETIRIZINE HYDROCHLORIDE] [Concomitant]
     Active Substance: CETIRIZINE HYDROCHLORIDE
     Indication: HYPERSENSITIVITY
  2. THEOPHYLLINE [Suspect]
     Active Substance: THEOPHYLLINE ANHYDROUS
     Dosage: UNIPHYL, 600 MG DAILY
     Route: 065
  3. BUPROPION HYDROCHLORIDE. [Concomitant]
     Active Substance: BUPROPION HYDROCHLORIDE
     Indication: DEPRESSION
     Route: 048
  4. DULOXETINE HYDROCHLORIDE. [Concomitant]
     Active Substance: DULOXETINE HYDROCHLORIDE
     Indication: DEPRESSION
     Route: 048
  5. ESOMEPRAZOLE MAGNESIUM. [Concomitant]
     Active Substance: ESOMEPRAZOLE MAGNESIUM
     Indication: GASTROOESOPHAGEAL REFLUX DISEASE
  6. ALVESCO [Suspect]
     Active Substance: CICLESONIDE
     Route: 055
  7. ATROVENT [Suspect]
     Active Substance: IPRATROPIUM BROMIDE
     Route: 065
  8. ADVAIR HFA [Suspect]
     Active Substance: FLUTICASONE PROPIONATE\SALMETEROL XINAFOATE
     Indication: ASTHMA
     Route: 065
  9. GLYCOPYRRONIUM BROMIDE [Suspect]
     Active Substance: GLYCOPYRRONIUM
     Route: 055
  10. PREDNISONE. [Suspect]
     Active Substance: PREDNISONE
     Route: 048
  11. VALSARTAN. [Concomitant]
     Active Substance: VALSARTAN
     Route: 048
  12. VITAMIN D [Concomitant]
     Active Substance: CHOLECALCIFEROL
     Route: 048
  13. PANTOPRAZOLE SODIUM. [Concomitant]
     Active Substance: PANTOPRAZOLE SODIUM
     Route: 048
  14. SYMBICORT [Suspect]
     Active Substance: BUDESONIDE\FORMOTEROL FUMARATE DIHYDRATE
     Dosage: 4 DF, FREQUENCY UNKNOWN UNKNOWN
     Route: 055
  15. FLOVENT [Suspect]
     Active Substance: FLUTICASONE PROPIONATE
     Indication: ASTHMA
     Route: 065
  16. VALSARTAN AND HYDROCHLOROTHIAZIDE [Concomitant]
     Active Substance: HYDROCHLOROTHIAZIDE\VALSARTAN
  17. ALVESCO [Suspect]
     Active Substance: CICLESONIDE
     Dosage: CICLESONIDE
     Route: 065
  18. AVAMYS [Suspect]
     Active Substance: FLUTICASONE FUROATE
     Indication: ASTHMA
     Dosage: METERED DOSE
     Route: 065
  19. SALBUTAMOL SULFATE [Suspect]
     Active Substance: ALBUTEROL SULFATE
     Indication: ASTHMA
     Route: 065
  20. THEOPHYLLINE [Suspect]
     Active Substance: THEOPHYLLINE ANHYDROUS
     Route: 065
  21. PAROXETINE HYDROCHLORIDE. [Concomitant]
     Active Substance: PAROXETINE HYDROCHLORIDE
  22. SINGULAIR [Suspect]
     Active Substance: MONTELUKAST SODIUM
     Route: 048
  23. PREMARIN [Concomitant]
     Active Substance: ESTROGENS, CONJUGATED
     Route: 048

REACTIONS (28)
  - Affective disorder [Recovering/Resolving]
  - Oxygen saturation decreased [Recovering/Resolving]
  - Herpes zoster [Recovering/Resolving]
  - Sinus tachycardia [Recovering/Resolving]
  - Infection [Recovering/Resolving]
  - Maternal exposure during pregnancy [Recovering/Resolving]
  - Condition aggravated [Recovering/Resolving]
  - Nasal turbinate hypertrophy [Recovering/Resolving]
  - Rhonchi [Recovering/Resolving]
  - Nasal congestion [Recovering/Resolving]
  - Sinusitis [Recovering/Resolving]
  - Drug effect incomplete [Recovering/Resolving]
  - Bronchial disorder [Recovering/Resolving]
  - Bronchial neoplasm [Recovering/Resolving]
  - Endometrial ablation [Recovering/Resolving]
  - Granuloma [Recovering/Resolving]
  - Lower respiratory tract infection [Recovering/Resolving]
  - Obstructive airways disorder [Recovering/Resolving]
  - Weight increased [Recovering/Resolving]
  - Hypersensitivity [Recovering/Resolving]
  - Ankle fracture [Recovering/Resolving]
  - Asthma [Recovering/Resolving]
  - Breath sounds abnormal [Recovering/Resolving]
  - Dyspnoea [Recovering/Resolving]
  - Respiratory disorder [Recovering/Resolving]
  - Rhinitis [Recovering/Resolving]
  - Wheezing [Recovering/Resolving]
  - Bronchial haemorrhage [Recovering/Resolving]
